FAERS Safety Report 15673538 (Version 2)
Quarter: 2018Q4

REPORT INFORMATION
  Report Type: Spontaneous
  Country: US (occurrence: US)
  Receive Date: 20181129
  Receipt Date: 20181228
  Transmission Date: 20190205
  Serious: No
  Sender: FDA-Public Use
  Company Number: US-PFIZER INC-2018480410

PATIENT
  Age: 57 Year
  Sex: Female
  Weight: 88.45 kg

DRUGS (10)
  1. VALSARTAN. [Concomitant]
     Active Substance: VALSARTAN
     Indication: BLOOD PRESSURE ABNORMAL
     Dosage: 160 MG, 1X/DAY
     Route: 048
     Dates: start: 2013
  2. MOMETASONE FUROATE. [Concomitant]
     Active Substance: MOMETASONE FUROATE
     Indication: SEASONAL ALLERGY
     Dosage: 50 UG, 1X/DAY(ONE SPRAY EACH NOSTRIL)
     Route: 045
     Dates: start: 2011
  3. NEXIUM [ESOMEPRAZOLE MAGNESIUM] [Concomitant]
     Active Substance: ESOMEPRAZOLE MAGNESIUM
     Indication: GASTROOESOPHAGEAL REFLUX DISEASE
     Dosage: 40 MG, 2X/DAY
     Route: 048
  4. ESTRING [Suspect]
     Active Substance: ESTRADIOL
     Indication: HORMONE THERAPY
     Dosage: 2 MG, UNK(LEAVE IN FOR 90 DAYS)
     Route: 067
     Dates: start: 20180701
  5. VESICARE [Concomitant]
     Active Substance: SOLIFENACIN SUCCINATE
     Indication: INCONTINENCE
     Dosage: 5 MG, 1X/DAY
     Route: 048
     Dates: start: 2010
  6. VALACYCLOVIR [VALACICLOVIR] [Concomitant]
     Indication: HERPES SIMPLEX
     Dosage: 500 MG, DAILY
     Route: 048
     Dates: start: 1998
  7. NORTRIPTYLINE [Concomitant]
     Active Substance: NORTRIPTYLINE
     Indication: GASTROOESOPHAGEAL REFLUX DISEASE
     Dosage: 50 MG, 1X/DAY
     Route: 048
     Dates: start: 201706
  8. PRAVASTATIN. [Concomitant]
     Active Substance: PRAVASTATIN
     Indication: BLOOD CHOLESTEROL ABNORMAL
     Dosage: 80 MG, 1X/DAY
     Route: 048
     Dates: start: 201705
  9. CARTIA XT [Concomitant]
     Active Substance: DILTIAZEM HYDROCHLORIDE
     Indication: BLOOD PRESSURE ABNORMAL
     Dosage: 180 MG, 1X/DAY
     Route: 048
     Dates: start: 2016
  10. ALLEGRA [Concomitant]
     Active Substance: FEXOFENADINE HYDROCHLORIDE
     Indication: SEASONAL ALLERGY
     Dosage: 180 MG, 1X/DAY
     Route: 048
     Dates: start: 201810

REACTIONS (6)
  - Poor quality product administered [Unknown]
  - Drug ineffective [Unknown]
  - Vulvovaginal discomfort [Recovered/Resolved]
  - Product odour abnormal [Unknown]
  - Intentional product misuse [Unknown]
  - Vaginal infection [Unknown]

NARRATIVE: CASE EVENT DATE: 20180701
